FAERS Safety Report 25993849 (Version 1)
Quarter: 2025Q4

REPORT INFORMATION
  Report Type: Spontaneous
  Country: US (occurrence: US)
  Receive Date: 20251104
  Receipt Date: 20251104
  Transmission Date: 20260117
  Serious: No
  Sender: BRISTOL-MYERS SQUIBB COMPANY
  Company Number: US-BRISTOL-MYERS SQUIBB COMPANY-2025-149320

PATIENT
  Age: 86 Year
  Sex: Female
  Weight: 61.69 kg

DRUGS (1)
  1. POMALYST [Suspect]
     Active Substance: POMALIDOMIDE
     Indication: Plasma cell myeloma
     Route: 048

REACTIONS (3)
  - Diarrhoea [Recovering/Resolving]
  - Abdominal discomfort [Recovering/Resolving]
  - Abdominal pain upper [Recovering/Resolving]
